FAERS Safety Report 5221695-9 (Version None)
Quarter: 2007Q1

REPORT INFORMATION
  Report Type: 
  Country: None (occurrence: None)
  Receive Date: 20070129
  Receipt Date: 20070117
  Transmission Date: 20070707
  Serious: Yes (Hospitalization, Other)
  Sender: FDA-Public Use
  Company Number: PHMT2006CA02310

PATIENT
  Age: 33 Year
  Sex: Male

DRUGS (5)
  1. CLOZARIL [Suspect]
     Indication: SCHIZOPHRENIA
     Dosage: 50 MG BID AND 100 MG QHS
     Route: 048
     Dates: start: 20060802, end: 20061218
  2. GLUCOPHAGE [Concomitant]
  3. LIPIDIL [Concomitant]
  4. CRESTOR [Concomitant]
  5. HALOPERIDOL [Concomitant]
     Dosage: 2 MG, QHS
     Dates: start: 20061213, end: 20061218

REACTIONS (5)
  - BLOOD TRIGLYCERIDES INCREASED [None]
  - DIABETES MELLITUS INADEQUATE CONTROL [None]
  - DIABETES MELLITUS INSULIN-DEPENDENT [None]
  - HIGH DENSITY LIPOPROTEIN DECREASED [None]
  - HYPERGLYCAEMIA [None]
